FAERS Safety Report 24797634 (Version 1)
Quarter: 2025Q1

REPORT INFORMATION
  Report Type: Spontaneous
  Country: US (occurrence: US)
  Receive Date: 20250102
  Receipt Date: 20250102
  Transmission Date: 20250409
  Serious: Yes (Other)
  Sender: SANDOZ
  Company Number: US-002147023-NVSC2024US078467

PATIENT
  Sex: Female

DRUGS (10)
  1. ADALIMUMAB [Suspect]
     Active Substance: ADALIMUMAB
     Indication: Product used for unknown indication
     Route: 065
  2. COSENTYX [Suspect]
     Active Substance: SECUKINUMAB
     Indication: Psoriatic arthropathy
     Dosage: 150 MG, QMO (INJECTION NOS)
     Route: 065
     Dates: start: 2019
  3. COSENTYX [Suspect]
     Active Substance: SECUKINUMAB
     Indication: Psoriasis
     Dosage: 300 MG, QMO (INJECTION NOS)
     Route: 065
  4. COSENTYX [Suspect]
     Active Substance: SECUKINUMAB
     Route: 065
  5. ETANERCEPT [Suspect]
     Active Substance: ETANERCEPT
     Indication: Product used for unknown indication
     Route: 065
  6. HUMIRA [Suspect]
     Active Substance: ADALIMUMAB
     Indication: Psoriasis
     Route: 065
  7. LEFLUNOMIDE [Suspect]
     Active Substance: LEFLUNOMIDE
     Indication: Product used for unknown indication
     Route: 065
  8. METHOTREXATE [Suspect]
     Active Substance: METHOTREXATE
     Indication: Product used for unknown indication
     Route: 065
  9. USTEKINUMAB [Suspect]
     Active Substance: USTEKINUMAB
     Indication: Psoriasis
     Route: 065
  10. STELARA [Concomitant]
     Active Substance: USTEKINUMAB
     Indication: Product used for unknown indication
     Route: 065

REACTIONS (29)
  - Psoriatic arthropathy [Unknown]
  - Deafness [Unknown]
  - Arthralgia [Unknown]
  - Tendon pain [Unknown]
  - Injection site pain [Unknown]
  - Liver function test abnormal [Unknown]
  - Skin hyperpigmentation [Unknown]
  - Hepatic enzyme increased [Unknown]
  - Peripheral swelling [Unknown]
  - Inflammation [Unknown]
  - Muscular weakness [Unknown]
  - Pain [Unknown]
  - Hypoaesthesia [Unknown]
  - Asthenia [Unknown]
  - Headache [Unknown]
  - Paraesthesia [Unknown]
  - Anxiety [Unknown]
  - Road traffic accident [Unknown]
  - Fracture [Unknown]
  - Head injury [Unknown]
  - Skin wound [Unknown]
  - Peripheral coldness [Unknown]
  - COVID-19 [Unknown]
  - Psoriasis [Recovering/Resolving]
  - Nail psoriasis [Unknown]
  - Alopecia [Unknown]
  - Insomnia [Unknown]
  - Musculoskeletal stiffness [Unknown]
  - Drug ineffective [Unknown]
